FAERS Safety Report 11988785 (Version 1)
Quarter: 2016Q1

REPORT INFORMATION
  Report Type: Spontaneous
  Country: US (occurrence: US)
  Receive Date: 20160202
  Receipt Date: 20160202
  Transmission Date: 20160526
  Serious: Yes (Hospitalization)
  Sender: FDA-Public Use
  Company Number: US-MALLINCKRODT-T201600294

PATIENT
  Age: 0 Year
  Sex: Female
  Weight: 2 kg

DRUGS (2)
  1. H.P. ACTHAR [Suspect]
     Active Substance: CORTICOTROPIN
     Dosage: 80 UNITS ONCE DAILY FOR 5 DAYS FOR 3 CONSECUTIVE MONTHS (NOV AND DEC 2015/JAN 2016
     Route: 050
     Dates: start: 201512
  2. H.P. ACTHAR [Suspect]
     Active Substance: CORTICOTROPIN
     Indication: FOETAL EXPOSURE DURING PREGNANCY
     Dosage: 80 UNITS ONCE DAILY FOR 5 DAYS FOR 3 CONSECUTIVE MONTHS (NOV AND DEC 2015/JAN 2016
     Route: 064
     Dates: start: 201511, end: 201511

REACTIONS (3)
  - Premature baby [Unknown]
  - Exposure during breast feeding [Not Recovered/Not Resolved]
  - Foetal exposure during pregnancy [Unknown]

NARRATIVE: CASE EVENT DATE: 201511
